FAERS Safety Report 7377462-3 (Version None)
Quarter: 2011Q1

REPORT INFORMATION
  Report Type: 
  Country: None (occurrence: None)
  Receive Date: 20110328
  Receipt Date: 20110314
  Transmission Date: 20110831
  Serious: Yes (Hospitalization, Other)
  Sender: FDA-Public Use
  Company Number: PHHY2011BR21730

PATIENT
  Sex: Female

DRUGS (4)
  1. FLUOXETINE [Concomitant]
     Dosage: 10 MG,  2 TABLETS A DAY
     Dates: start: 20100101
  2. DIOVAN HCT [Suspect]
     Indication: HYPERTENSION
     Dosage: 160/25 MG, 1 TABLET A DAY
  3. DIAZEPAM [Concomitant]
     Dosage: 10 MG,1 TABLET A DAY
     Dates: start: 20110201
  4. NIFEDIPINE [Concomitant]
     Indication: HYPERTENSION
     Dosage: 20 MG,  TABLET A DAY
     Dates: start: 20110201

REACTIONS (4)
  - NERVOUSNESS [None]
  - MENTAL DISORDER [None]
  - AGGRESSION [None]
  - BIPOLAR DISORDER [None]
